FAERS Safety Report 13773525 (Version 1)
Quarter: 2017Q3

REPORT INFORMATION
  Report Type: Spontaneous
  Country: US (occurrence: US)
  Receive Date: 20170720
  Receipt Date: 20170720
  Transmission Date: 20171127
  Serious: No
  Sender: FDA-Public Use
  Company Number: PHEH2017US021785

PATIENT
  Age: 65 Year
  Weight: 81.64 kg

DRUGS (2)
  1. DUREZOL [Suspect]
     Active Substance: DIFLUPREDNATE
     Indication: EYE INFLAMMATION
  2. DUREZOL [Suspect]
     Active Substance: DIFLUPREDNATE
     Indication: EYE PAIN
     Dosage: 2 GTT, BID
     Route: 047
     Dates: start: 20170511

REACTIONS (1)
  - Eye swelling [Not Recovered/Not Resolved]

NARRATIVE: CASE EVENT DATE: 20170511
